FAERS Safety Report 6810183-1 (Version None)
Quarter: 2010Q2

REPORT INFORMATION
  Report Type: 
  Country: None (occurrence: None)
  Receive Date: 20100630
  Receipt Date: 20100623
  Transmission Date: 20101027
  Serious: Yes (Hospitalization)
  Sender: FDA-Public Use
  Company Number: JP-MERCK-1006USA01060

PATIENT
  Age: 82 Year
  Sex: Female
  Weight: 39 kg

DRUGS (10)
  1. JANUVIA [Suspect]
     Indication: DIABETES MELLITUS
     Route: 048
     Dates: start: 20100224, end: 20100530
  2. AMARYL [Concomitant]
     Route: 048
  3. PEPCID RPD [Concomitant]
     Route: 048
  4. AMLODIPINE BESYLATE [Concomitant]
     Route: 048
  5. ALLELOCK [Concomitant]
     Route: 048
  6. IMIDAPRIL HYDROCHLORIDE [Concomitant]
     Route: 048
  7. RIBALL [Suspect]
     Route: 048
     Dates: end: 20100530
  8. MEDICON [Suspect]
     Route: 048
     Dates: end: 20100530
  9. FUROSEMIDE [Suspect]
     Route: 048
     Dates: end: 20100530
  10. RINDERON VG [Concomitant]
     Route: 061

REACTIONS (2)
  - DERMATITIS EXFOLIATIVE [None]
  - INTERSTITIAL LUNG DISEASE [None]
